FAERS Safety Report 21177608 (Version 2)
Quarter: 2022Q3

REPORT INFORMATION
  Report Type: Spontaneous
  Country: CH (occurrence: CH)
  Receive Date: 20220805
  Receipt Date: 20220826
  Transmission Date: 20221027
  Serious: Yes (Hospitalization)
  Sender: FDA-Public Use
  Company Number: CH-TEVA-2022-CH-2060049

PATIENT
  Age: 60 Year
  Sex: Male

DRUGS (1)
  1. AMOXICILLIN [Suspect]
     Active Substance: AMOXICILLIN
     Indication: Antibiotic prophylaxis
     Route: 065

REACTIONS (4)
  - Tongue oedema [Recovered/Resolved]
  - Dyspnoea [Recovered/Resolved]
  - Angioedema [Recovered/Resolved]
  - Drug hypersensitivity [Unknown]
